FAERS Safety Report 17445885 (Version 3)
Quarter: 2020Q1

REPORT INFORMATION
  Report Type: Report from Study
  Country: ES (occurrence: ES)
  Receive Date: 20200221
  Receipt Date: 20200310
  Transmission Date: 20200409
  Serious: Yes (Hospitalization, Other)
  Sender: FDA-Public Use
  Company Number: ES-VELOXIS PHARMACEUTICALS-2020VELES-000133

PATIENT
  Age: 52 Year
  Sex: Female
  Weight: 53 kg

DRUGS (5)
  1. ENVARSUS XR [Suspect]
     Active Substance: TACROLIMUS
     Dosage: UNK
     Route: 065
  2. ENVARSUS XR [Suspect]
     Active Substance: TACROLIMUS
     Dosage: UNK
     Route: 048
  3. ENVARSUS XR [Suspect]
     Active Substance: TACROLIMUS
     Indication: LIVER TRANSPLANT
     Dosage: 1 MG, QD
     Route: 048
     Dates: start: 20170421
  4. CERTICAN [Concomitant]
     Active Substance: EVEROLIMUS
     Indication: IMMUNOSUPPRESSION
     Dosage: 3.5 MG, QD
     Route: 065
     Dates: start: 20170622
  5. ENVARSUS XR [Suspect]
     Active Substance: TACROLIMUS
     Dosage: UNK
     Route: 048

REACTIONS (10)
  - Diarrhoea [Recovered/Resolved]
  - Transplant rejection [Recovered/Resolved]
  - Cell death [Recovered/Resolved]
  - Cholestasis [Not Recovered/Not Resolved]
  - Renal impairment [Recovered/Resolved]
  - Abdominal discomfort [Recovered/Resolved]
  - Ascites [Recovered/Resolved]
  - Pruritus [Recovered/Resolved]
  - Diarrhoea [Recovered/Resolved]
  - Tremor [Recovered/Resolved]

NARRATIVE: CASE EVENT DATE: 20170424
